FAERS Safety Report 9495358 (Version 1)
Quarter: 2013Q3

REPORT INFORMATION
  Report Type: Report from Study
  Country: DE (occurrence: DE)
  Receive Date: 20130903
  Receipt Date: 20130903
  Transmission Date: 20140515
  Serious: Yes (Life-Threatening, Hospitalization)
  Sender: FDA-Public Use
  Company Number: DE-BAYER-2012-133230

PATIENT
  Sex: Male
  Weight: 69 kg

DRUGS (9)
  1. REGORAFENIB [Suspect]
     Indication: COLORECTAL CANCER
     Dosage: 80 MG DAILY
     Route: 048
     Dates: start: 20121120
  2. REGORAFENIB [Suspect]
     Indication: COLORECTAL CANCER
     Dosage: 80 MG DAILY
     Route: 048
     Dates: start: 20121029, end: 20121119
  3. REGORAFENIB [Suspect]
     Indication: COLORECTAL CANCER
     Dosage: 80 MG DAILY
     Route: 048
     Dates: start: 20121018, end: 20121023
  4. REGORAFENIB [Suspect]
     Indication: COLORECTAL CANCER
     Dosage: 120 MG DAILY
     Route: 048
     Dates: start: 20120918, end: 20121001
  5. REGORAFENIB [Suspect]
     Indication: COLORECTAL CANCER
     Dosage: 160 MG DAILY
     Route: 048
     Dates: start: 20120911, end: 20120917
  6. TILIDIN [Concomitant]
     Indication: PAIN
     Dosage: DAILY DOSE 20 GTT
     Route: 048
     Dates: start: 20121120
  7. CARVE [Concomitant]
     Dosage: DAILY DOSE 10 MG
     Route: 048
     Dates: start: 20121120
  8. MCP [Concomitant]
     Indication: NAUSEA
     Dosage: UNK
     Route: 048
  9. SYMBICORT [Concomitant]
     Indication: BRONCHITIS CHRONIC
     Dosage: DAILY DOSE 2 PUFF(S)
     Route: 048
     Dates: start: 20121120

REACTIONS (1)
  - Myocardial infarction [Recovered/Resolved]
